FAERS Safety Report 6784674-6 (Version None)
Quarter: 2010Q2

REPORT INFORMATION
  Report Type: 
  Country: None (occurrence: None)
  Receive Date: 20100622
  Receipt Date: 20100609
  Transmission Date: 20101027
  Serious: Yes (Life-Threatening, Hospitalization)
  Sender: FDA-Public Use
  Company Number: FR-BAXTER-2010BH015780

PATIENT
  Age: 47 Year
  Sex: Female

DRUGS (34)
  1. SUPRANE [Suspect]
     Indication: HYSTERECTOMY
     Route: 055
     Dates: start: 20100429, end: 20100401
  2. SUPRANE [Suspect]
     Indication: CYSTOSCOPY
     Route: 055
     Dates: start: 20100429, end: 20100401
  3. SUPRANE [Suspect]
     Indication: URETEROSCOPY
     Route: 055
     Dates: start: 20100429, end: 20100401
  4. SUPRANE [Suspect]
     Route: 055
     Dates: start: 20100501, end: 20100501
  5. SUPRANE [Suspect]
     Route: 055
     Dates: start: 20100501, end: 20100501
  6. SUPRANE [Suspect]
     Route: 055
     Dates: start: 20100501, end: 20100501
  7. SUFENTANIL CITRATE [Suspect]
     Indication: HYSTERECTOMY
     Route: 042
     Dates: start: 20100429, end: 20100429
  8. SUFENTANIL CITRATE [Suspect]
     Indication: CYSTOSCOPY
     Route: 042
     Dates: start: 20100429, end: 20100429
  9. SUFENTANIL CITRATE [Suspect]
     Indication: URETEROSCOPY
     Route: 042
     Dates: start: 20100429, end: 20100429
  10. SUFENTANIL CITRATE [Suspect]
     Route: 042
     Dates: start: 20100501, end: 20100501
  11. SUFENTANIL CITRATE [Suspect]
     Route: 042
     Dates: start: 20100501, end: 20100501
  12. SUFENTANIL CITRATE [Suspect]
     Route: 042
     Dates: start: 20100501, end: 20100501
  13. PROPOFOL [Suspect]
     Indication: HYSTERECTOMY
     Route: 042
     Dates: start: 20100429, end: 20100429
  14. PROPOFOL [Suspect]
     Indication: CYSTOSCOPY
     Route: 042
     Dates: start: 20100429, end: 20100429
  15. PROPOFOL [Suspect]
     Indication: URETEROSCOPY
     Route: 042
     Dates: start: 20100429, end: 20100429
  16. PROPOFOL [Suspect]
     Route: 042
     Dates: start: 20100501, end: 20100501
  17. PROPOFOL [Suspect]
     Route: 042
     Dates: start: 20100501, end: 20100501
  18. PROPOFOL [Suspect]
     Route: 042
     Dates: start: 20100501, end: 20100501
  19. ATRACURIUM [Suspect]
     Indication: HYSTERECTOMY
     Route: 042
     Dates: start: 20100429, end: 20100429
  20. AUGMENTIN '125' [Suspect]
     Indication: HYSTERECTOMY
     Route: 042
     Dates: start: 20100429, end: 20100429
  21. KETAMINE [Suspect]
     Indication: HYSTERECTOMY
     Route: 042
     Dates: start: 20100429, end: 20100429
  22. NAROPIN [Suspect]
     Indication: HYSTERECTOMY
     Route: 065
     Dates: start: 20100429, end: 20100429
  23. NEURONTIN [Suspect]
     Indication: PREMEDICATION
     Route: 048
     Dates: start: 20100428, end: 20100429
  24. BETADINE SURGICAL SCRUB LIQUID [Suspect]
     Indication: PREMEDICATION
     Route: 061
     Dates: start: 20100429, end: 20100429
  25. BETADINE SURGICAL SCRUB LIQUID [Suspect]
     Route: 061
     Dates: start: 20100428, end: 20100428
  26. BETADINE SURGICAL SCRUB LIQUID [Suspect]
     Indication: PREMEDICATION
     Route: 067
     Dates: start: 20100429, end: 20100429
  27. NORMACOL [Suspect]
     Indication: DRUG USE FOR UNKNOWN INDICATION
     Route: 054
     Dates: start: 20100428, end: 20100428
  28. LOVENOX [Suspect]
     Indication: PREMEDICATION
     Route: 058
     Dates: start: 20100430, end: 20100430
  29. LOVENOX [Suspect]
     Route: 058
     Dates: start: 20100428, end: 20100428
  30. PERFALGAN [Suspect]
     Indication: HYSTERECTOMY
     Route: 042
     Dates: start: 20100429, end: 20100501
  31. ACUPAN [Suspect]
     Indication: DRUG USE FOR UNKNOWN INDICATION
     Route: 042
     Dates: start: 20100429, end: 20100430
  32. MORPHINE [Suspect]
     Indication: DRUG USE FOR UNKNOWN INDICATION
     Route: 042
     Dates: start: 20100429, end: 20100429
  33. EPHEDRINE [Suspect]
     Indication: DRUG USE FOR UNKNOWN INDICATION
     Route: 042
     Dates: start: 20100429, end: 20100429
  34. LEXOMIL [Concomitant]
     Indication: DRUG USE FOR UNKNOWN INDICATION
     Route: 065

REACTIONS (4)
  - ACUTE PULMONARY OEDEMA [None]
  - HAEMATURIA [None]
  - OLIGURIA [None]
  - RENAL FAILURE ACUTE [None]
